FAERS Safety Report 7148021-2 (Version None)
Quarter: 2010Q4

REPORT INFORMATION
  Report Type: 
  Country: None (occurrence: None)
  Receive Date: 20101209
  Receipt Date: 20101129
  Transmission Date: 20110411
  Serious: Yes (Other)
  Sender: FDA-Public Use
  Company Number: US-CELGENEUS-163-21880-10120037

PATIENT
  Sex: Male

DRUGS (8)
  1. REVLIMID [Suspect]
     Indication: MULTIPLE MYELOMA
     Route: 048
     Dates: start: 20070101
  2. REVLIMID [Suspect]
     Route: 048
     Dates: start: 20070601
  3. REVLIMID [Suspect]
     Route: 048
     Dates: start: 20080101
  4. VITAMIN B-12 [Concomitant]
     Route: 065
  5. FOLIC ACID [Concomitant]
     Route: 065
  6. NORVASC [Concomitant]
     Route: 065
  7. CALCIUM [Concomitant]
     Route: 065
  8. ASPIRIN [Concomitant]
     Route: 065

REACTIONS (14)
  - BLOOD GLUCOSE DECREASED [None]
  - CANDIDIASIS [None]
  - CONFUSIONAL STATE [None]
  - CONVULSION [None]
  - DYSPHONIA [None]
  - FATIGUE [None]
  - INSOMNIA [None]
  - LOSS OF CONSCIOUSNESS [None]
  - MEMORY IMPAIRMENT [None]
  - NEUROPATHY PERIPHERAL [None]
  - NEUTROPENIA [None]
  - PLATELET COUNT DECREASED [None]
  - PRESYNCOPE [None]
  - ROTATOR CUFF SYNDROME [None]
